FAERS Safety Report 14645818 (Version 2)
Quarter: 2018Q1

REPORT INFORMATION
  Report Type: Spontaneous
  Country: US (occurrence: US)
  Receive Date: 20180316
  Receipt Date: 20180319
  Transmission Date: 20180509
  Serious: Yes (Other)
  Sender: FDA-Public Use
  Company Number: US-STRIDES ARCOLAB LIMITED-2018SP001793

PATIENT

DRUGS (2)
  1. SCOPOLAMINE                        /00008701/ [Suspect]
     Active Substance: SCOPOLAMINE
     Indication: RESPIRATORY TRACT INFECTION
     Dosage: 1.5 MG, UNKNOWN
     Route: 062
  2. METRONIDAZOLE. [Suspect]
     Active Substance: METRONIDAZOLE
     Indication: SKIN INFECTION
     Dosage: 500 MG, EVERY 8 HOURS
     Route: 042

REACTIONS (2)
  - Delirium [Recovered/Resolved]
  - Agitation [Recovered/Resolved]
